FAERS Safety Report 24034586 (Version 1)
Quarter: 2024Q3

REPORT INFORMATION
  Report Type: Spontaneous
  Country: GB (occurrence: GB)
  Receive Date: 20240701
  Receipt Date: 20240701
  Transmission Date: 20241016
  Serious: Yes (Disabling)
  Sender: TORRENT
  Company Number: None

PATIENT
  Sex: Female

DRUGS (2)
  1. LOSARTAN [Suspect]
     Active Substance: LOSARTAN
     Indication: Hypertension
     Dosage: 100MG
     Route: 065
     Dates: start: 20240501
  2. AMLODIPINE [Concomitant]
     Active Substance: AMLODIPINE BESYLATE
     Indication: Adverse drug reaction
     Dosage: UNKNOWN
     Route: 065

REACTIONS (1)
  - Anxiety disorder [Recovering/Resolving]
